FAERS Safety Report 13195227 (Version 1)
Quarter: 2017Q1

REPORT INFORMATION
  Report Type: Spontaneous
  Country: JP (occurrence: JP)
  Receive Date: 20170208
  Receipt Date: 20170208
  Transmission Date: 20170428
  Serious: Yes (Hospitalization, Other)
  Sender: FDA-Public Use
  Company Number: JP-TAKEDA-2016TJP023134AA

PATIENT
  Age: 72 Year
  Sex: Male

DRUGS (8)
  1. ACTOS [Suspect]
     Active Substance: PIOGLITAZONE HYDROCHLORIDE
     Indication: DIABETES MELLITUS
     Dosage: 15 MG, QD
     Route: 048
     Dates: start: 20080421, end: 20160415
  2. ACINON                             /00867001/ [Concomitant]
     Active Substance: NIZATIDINE
     Dosage: 150 MG, QD
     Route: 048
     Dates: start: 20050304
  3. AMLODIN [Concomitant]
     Active Substance: AMLODIPINE BESYLATE
     Indication: HYPERTENSION
     Dosage: 2.5 MG, QD
     Route: 048
     Dates: start: 20030828, end: 20070129
  4. NESINA [Concomitant]
     Active Substance: ALOGLIPTIN BENZOATE
     Dosage: 25 MG, QD
     Route: 048
     Dates: start: 20130122
  5. AMLODIN [Concomitant]
     Active Substance: AMLODIPINE BESYLATE
     Dosage: 5 MG, QD
     Route: 048
     Dates: start: 20070130
  6. MELBIN                             /00082702/ [Concomitant]
     Active Substance: METFORMIN HYDROCHLORIDE
     Dosage: 250 MG, BID
     Route: 048
     Dates: start: 20071112
  7. AMARYL [Concomitant]
     Active Substance: GLIMEPIRIDE
     Indication: DIABETES MELLITUS
     Dosage: 3 MG, QD
     Route: 048
     Dates: start: 20070726, end: 20130121
  8. AMARYL [Concomitant]
     Active Substance: GLIMEPIRIDE
     Dosage: 1 MG, QD
     Route: 048
     Dates: start: 20130122

REACTIONS (3)
  - Colon cancer [Recovering/Resolving]
  - Bladder cancer [Recovered/Resolved with Sequelae]
  - Prostate cancer [Recovering/Resolving]

NARRATIVE: CASE EVENT DATE: 20160602
